FAERS Safety Report 8357026-5 (Version None)
Quarter: 2012Q2

REPORT INFORMATION
  Report Type: 
  Country: None (occurrence: None)
  Receive Date: 20120514
  Receipt Date: 20120430
  Transmission Date: 20120825
  Serious: Yes (Other)
  Sender: FDA-Public Use
  Company Number: DE-MYLANLABS-2012S1008757

PATIENT
  Age: 79 Year
  Sex: Male
  Weight: 65 kg

DRUGS (1)
  1. DICLOFENAC SODIUM [Suspect]
     Indication: ARTHRITIS
     Dosage: DAILY DOSE: 75 MG MILLGRAM(S) EVERY DAYS
     Route: 048
     Dates: start: 20111013, end: 20111013

REACTIONS (1)
  - URINARY HESITATION [None]
